FAERS Safety Report 12459149 (Version 1)
Quarter: 2016Q2

REPORT INFORMATION
  Report Type: Spontaneous
  Country: IT (occurrence: IT)
  Receive Date: 20160613
  Receipt Date: 20160613
  Transmission Date: 20160815
  Serious: Yes (Hospitalization)
  Sender: FDA-Public Use
  Company Number: IT-SA-2016SA108182

PATIENT
  Age: 74 Year
  Sex: Male

DRUGS (7)
  1. NICOZID [Suspect]
     Active Substance: ISONIAZID
     Indication: PULMONARY TUBERCULOSIS
     Dosage: STRENGTH: 200 MG
     Route: 048
     Dates: start: 20070524, end: 20070701
  2. FERRO-GRAD [Concomitant]
     Active Substance: FERROUS SULFATE
     Dosage: DOSE:1 UNIT(S)
     Route: 048
  3. ETAPIAM [Concomitant]
     Active Substance: ETHAMBUTOL HYDROCHLORIDE
     Indication: PULMONARY TUBERCULOSIS
     Dosage: 400 MG
     Route: 048
     Dates: start: 20070524, end: 20070606
  4. PIRALDINA [Suspect]
     Active Substance: PYRAZINAMIDE
     Indication: PULMONARY TUBERCULOSIS
     Dosage: STRENGTH: 500 MG
     Route: 048
     Dates: start: 20070524, end: 20070701
  5. SINTROM [Suspect]
     Active Substance: ACENOCOUMAROL
     Indication: EMBOLISM VENOUS
     Dosage: STRENGTH: 4 MG DIVISIBLE INTO FOUR TABLET
     Route: 048
  6. RIFADIN [Suspect]
     Active Substance: RIFAMPIN
     Indication: PULMONARY TUBERCULOSIS
     Route: 048
     Dates: start: 20070524, end: 20070701
  7. OMEPRAZOLE. [Concomitant]
     Active Substance: OMEPRAZOLE
     Route: 048

REACTIONS (1)
  - Deep vein thrombosis [Recovering/Resolving]

NARRATIVE: CASE EVENT DATE: 20070615
